FAERS Safety Report 19808107 (Version 1)
Quarter: 2021Q3

REPORT INFORMATION
  Report Type: Spontaneous
  Country: BR (occurrence: BR)
  Receive Date: 20210908
  Receipt Date: 20210908
  Transmission Date: 20211014
  Serious: Yes (Other)
  Sender: FDA-Public Use
  Company Number: BR-TAKEDA-2021TUS051260

PATIENT
  Sex: Male
  Weight: 89 kg

DRUGS (3)
  1. ATACAND [Concomitant]
     Active Substance: CANDESARTAN CILEXETIL
     Indication: BLOOD PRESSURE MEASUREMENT
     Dosage: UNK
     Route: 065
  2. MESACOL MMX [Suspect]
     Active Substance: MESALAMINE
     Indication: DIVERTICULUM
     Dosage: 1200 MILLIGRAM
     Route: 048
  3. PROBIOTIC [Concomitant]
     Active Substance: PROBIOTICS NOS
     Dosage: UNK
     Route: 048

REACTIONS (5)
  - Adverse event [Unknown]
  - Product residue present [Unknown]
  - Drug ineffective for unapproved indication [Unknown]
  - Diverticulitis [Unknown]
  - Off label use [Unknown]
